FAERS Safety Report 22616236 (Version 2)
Quarter: 2024Q2

REPORT INFORMATION
  Report Type: Spontaneous
  Country: CN (occurrence: CN)
  Receive Date: 20230619
  Receipt Date: 20240425
  Transmission Date: 20240716
  Serious: Yes (Other)
  Sender: FDA-Public Use
  Company Number: CN-BAYER-2023A083247

PATIENT
  Sex: Female

DRUGS (1)
  1. YASMIN [Suspect]
     Active Substance: DROSPIRENONE\ETHINYL ESTRADIOL
     Dosage: UNK
     Route: 048
     Dates: end: 202306

REACTIONS (3)
  - Pregnancy on oral contraceptive [None]
  - Haemorrhage in pregnancy [None]
  - Product dose omission issue [None]

NARRATIVE: CASE EVENT DATE: 20230101
